FAERS Safety Report 7026202-6 (Version None)
Quarter: 2010Q4

REPORT INFORMATION
  Report Type: 
  Country: None (occurrence: None)
  Receive Date: 20101004
  Receipt Date: 20100923
  Transmission Date: 20110411
  Serious: No
  Sender: FDA-Public Use
  Company Number: 2010BI004291

PATIENT
  Age: 40 Year
  Sex: Male

DRUGS (1)
  1. TYSABRI [Suspect]
     Indication: MULTIPLE SCLEROSIS
     Route: 042
     Dates: start: 20090629

REACTIONS (5)
  - FATIGUE [None]
  - MEMORY IMPAIRMENT [None]
  - PAIN [None]
  - POOR VENOUS ACCESS [None]
  - VERTIGO [None]
